FAERS Safety Report 4602809-8 (Version None)
Quarter: 2005Q1

REPORT INFORMATION
  Report Type: 
  Country: None (occurrence: None)
  Receive Date: 20050307
  Receipt Date: 20050222
  Transmission Date: 20050727
  Serious: Yes (Other)
  Sender: FDA-Public Use
  Company Number: 2004237689AU

PATIENT
  Age: 56 Year
  Sex: Female
  Weight: 79.7 kg

DRUGS (6)
  1. CAMPTOSAR [Suspect]
     Indication: COLORECTAL CANCER METASTATIC
     Dosage: (300 MG), INTRAVENOUS
     Route: 042
     Dates: start: 20040825, end: 20040825
  2. WARFARIN SODIUM [Suspect]
     Indication: ILL-DEFINED DISORDER
     Dosage: ORAL
     Route: 048
  3. DEXAMETHASONE [Suspect]
     Indication: ILL-DEFINED DISORDER
     Dosage: INTRAVENOUS
     Route: 042
     Dates: start: 20040825, end: 20040825
  4. TROPISETRON (TROPISETRON) [Suspect]
     Indication: ILL-DEFINED DISORDER
     Dosage: ORAL
     Route: 048
     Dates: start: 20040825, end: 20040825
  5. FLUOROURACIL [Concomitant]
  6. LEUCOVORIN CALCIUM [Concomitant]

REACTIONS (4)
  - CHILLS [None]
  - DYSPNOEA [None]
  - HYPERTENSION [None]
  - MALAISE [None]
